FAERS Safety Report 7314134-5 (Version None)
Quarter: 2011Q1

REPORT INFORMATION
  Report Type: 
  Country: None (occurrence: None)
  Receive Date: 20110225
  Receipt Date: 20100601
  Transmission Date: 20110831
  Serious: No
  Sender: FDA-Public Use
  Company Number: US-MYLANLABS-2010S1008587

PATIENT
  Age: 14 Year
  Sex: Male
  Weight: 67.13 kg

DRUGS (8)
  1. TOPICORT /00028604/ [Concomitant]
     Dates: start: 20100512
  2. AMNESTEEM [Suspect]
     Dosage: DOSED QOD
     Route: 048
     Dates: start: 20100426, end: 20100512
  3. IBUPROFEN [Concomitant]
     Route: 048
     Dates: start: 20100426
  4. AMNESTEEM [Suspect]
     Indication: ACNE
     Route: 048
     Dates: start: 20100315, end: 20100426
  5. AMNESTEEM [Suspect]
     Dosage: QOD
     Route: 048
     Dates: start: 20100426, end: 20100512
  6. NORITATE [Concomitant]
     Route: 061
     Dates: start: 20100414
  7. CEPHALEXIN [Concomitant]
     Route: 048
     Dates: start: 20100414
  8. CLARAVIS [Suspect]
     Indication: ACNE
     Route: 048
     Dates: start: 20100218, end: 20100315

REACTIONS (2)
  - JOINT STIFFNESS [None]
  - MYALGIA [None]
